FAERS Safety Report 8486806-0 (Version None)
Quarter: 2012Q3

REPORT INFORMATION
  Report Type: 
  Country: None (occurrence: None)
  Receive Date: 20120704
  Receipt Date: 20120626
  Transmission Date: 20120928
  Serious: No
  Sender: FDA-Public Use
  Company Number: US-BIOGENIDEC-2012BI022752

PATIENT
  Sex: Female

DRUGS (1)
  1. AVONEX [Suspect]
     Indication: MULTIPLE SCLEROSIS
     Route: 030
     Dates: start: 20110711

REACTIONS (6)
  - ASTHENIA [None]
  - HYPOAESTHESIA [None]
  - DEPRESSION [None]
  - PAIN [None]
  - DIPLOPIA [None]
  - INFLUENZA LIKE ILLNESS [None]
